FAERS Safety Report 9447676 (Version 1)
Quarter: 2013Q3

REPORT INFORMATION
  Report Type: Spontaneous
  Country: GB (occurrence: GB)
  Receive Date: 20130808
  Receipt Date: 20130808
  Transmission Date: 20140515
  Serious: Yes (Other)
  Sender: FDA-Public Use
  Company Number: GB-JNJFOC-20130801324

PATIENT
  Sex: Male

DRUGS (1)
  1. TRAMADOL HYDROCHLORIDE [Suspect]
     Indication: PAIN MANAGEMENT
     Route: 065

REACTIONS (5)
  - Withdrawal syndrome [Unknown]
  - Irritability [Unknown]
  - Sleep disorder [Unknown]
  - Tension [Unknown]
  - Drug dose omission [Unknown]
